FAERS Safety Report 5884164-9 (Version None)
Quarter: 2008Q3

REPORT INFORMATION
  Report Type: 
  Country: None (occurrence: None)
  Receive Date: 20080915
  Receipt Date: 20080904
  Transmission Date: 20090109
  Serious: Yes (Other)
  Sender: FDA-Public Use
  Company Number: US-WYE-H05875808

PATIENT
  Sex: Female
  Weight: 99.88 kg

DRUGS (2)
  1. EFFEXOR XR [Suspect]
     Indication: DEPRESSION
     Route: 048
     Dates: start: 20060101, end: 20080101
  2. EFFEXOR XR [Suspect]
     Indication: OBSESSIVE-COMPULSIVE DISORDER
     Route: 048
     Dates: start: 20080101

REACTIONS (14)
  - ANGER [None]
  - CONDITION AGGRAVATED [None]
  - DEPRESSION [None]
  - DIZZINESS [None]
  - DRUG DEPENDENCE [None]
  - DRUG WITHDRAWAL SYNDROME [None]
  - FEELING ABNORMAL [None]
  - HYPERHIDROSIS [None]
  - INTENTIONAL SELF-INJURY [None]
  - NONSPECIFIC REACTION [None]
  - OBSESSIVE-COMPULSIVE DISORDER [None]
  - PANIC REACTION [None]
  - SUICIDAL IDEATION [None]
  - WEIGHT INCREASED [None]
